FAERS Safety Report 8459965-3 (Version None)
Quarter: 2012Q2

REPORT INFORMATION
  Report Type: 
  Country: None (occurrence: None)
  Receive Date: 20120622
  Receipt Date: 20120619
  Transmission Date: 20120825
  Serious: Yes (Hospitalization)
  Sender: FDA-Public Use
  Company Number: PHHY2012DE042641

PATIENT
  Sex: Female
  Weight: 60 kg

DRUGS (1)
  1. GILENYA [Suspect]
     Indication: MULTIPLE SCLEROSIS
     Dosage: 0.5 MG, QD
     Route: 048
     Dates: start: 20120515, end: 20120515

REACTIONS (6)
  - HYPOCHROMIC ANAEMIA [None]
  - HEART RATE DECREASED [None]
  - DIZZINESS [None]
  - PALLOR [None]
  - ATRIOVENTRICULAR BLOCK SECOND DEGREE [None]
  - BLOOD PRESSURE DECREASED [None]
